FAERS Safety Report 18356560 (Version 6)
Quarter: 2020Q4

REPORT INFORMATION
  Report Type: Spontaneous
  Country: US (occurrence: US)
  Receive Date: 20201007
  Receipt Date: 20201223
  Transmission Date: 20210114
  Serious: Yes (Hospitalization)
  Sender: FDA-Public Use
  Company Number: US-BLUEPRINT MEDICINES CORPORATION-SP-US-2020-001066

PATIENT
  Age: 76 Year
  Sex: Female

DRUGS (5)
  1. AYVAKIT [Suspect]
     Active Substance: AVAPRITINIB
     Indication: GASTROINTESTINAL STROMAL TUMOUR
     Route: 048
     Dates: start: 20180101
  2. AYVAKIT [Suspect]
     Active Substance: AVAPRITINIB
     Route: 048
     Dates: start: 20190101
  3. AYVAKIT [Suspect]
     Active Substance: AVAPRITINIB
     Route: 048
     Dates: start: 20200925
  4. AYVAKIT [Suspect]
     Active Substance: AVAPRITINIB
     Route: 048
     Dates: start: 20200101
  5. AYVAKIT [Suspect]
     Active Substance: AVAPRITINIB
     Route: 048
     Dates: start: 20200901

REACTIONS (15)
  - Hypotension [Recovered/Resolved]
  - Gastric ulcer haemorrhage [Recovered/Resolved]
  - Peripheral swelling [Unknown]
  - Diarrhoea [Not Recovered/Not Resolved]
  - Fall [Recovered/Resolved]
  - Fracture pain [Not Recovered/Not Resolved]
  - Upper limb fracture [Not Recovered/Not Resolved]
  - Dizziness [Not Recovered/Not Resolved]
  - Drug ineffective [Unknown]
  - Amnesia [Not Recovered/Not Resolved]
  - Head injury [Not Recovered/Not Resolved]
  - Neoplasm progression [Unknown]
  - Cystitis [Not Recovered/Not Resolved]
  - Anxiety [Not Recovered/Not Resolved]
  - Haemoglobin decreased [Not Recovered/Not Resolved]

NARRATIVE: CASE EVENT DATE: 20200925
